FAERS Safety Report 5395502-8 (Version None)
Quarter: 2007Q3

REPORT INFORMATION
  Report Type: 
  Country: None (occurrence: None)
  Receive Date: 20070724
  Receipt Date: 20070718
  Transmission Date: 20080115
  Serious: Yes (Hospitalization)
  Sender: FDA-Public Use
  Company Number: US-SANOFI-SYNTHELABO-F03200700141

PATIENT
  Sex: Male

DRUGS (7)
  1. IRON NOS [Concomitant]
     Dosage: UNK
     Route: 065
  2. MORPHINE [Concomitant]
     Dosage: UNK
     Route: 065
  3. LASIX [Concomitant]
     Dosage: UNK
     Route: 065
     Dates: start: 20070529
  4. LEUCOVORIN CALCIUM [Suspect]
     Indication: COLORECTAL CANCER METASTATIC
     Route: 042
     Dates: start: 20070529, end: 20070529
  5. BEVACIZUMAB [Suspect]
     Indication: COLORECTAL CANCER METASTATIC
     Route: 042
     Dates: start: 20070529, end: 20070529
  6. OXALIPLATIN [Suspect]
     Indication: COLORECTAL CANCER METASTATIC
     Route: 042
     Dates: start: 20070529, end: 20070529
  7. FLUOROURACIL [Suspect]
     Indication: COLORECTAL CANCER METASTATIC
     Dosage: 720MG INTRAVENOUS PUSH AND CONTINUOUS INFUSION 4320MG, EVERY 2 WEEKS
     Route: 042
     Dates: start: 20070529, end: 20070529

REACTIONS (1)
  - CARDIAC FAILURE CONGESTIVE [None]
